FAERS Safety Report 13988565 (Version 5)
Quarter: 2018Q1

REPORT INFORMATION
  Report Type: Report from Study
  Country: US (occurrence: US)
  Receive Date: 20170919
  Receipt Date: 20180314
  Transmission Date: 20180508
  Serious: Yes (Hospitalization)
  Sender: FDA-Public Use
  Company Number: US-ACTELION-A-US2016-136514

PATIENT
  Age: 85 Year
  Sex: Female

DRUGS (19)
  1. METOPROLOL. [Concomitant]
     Active Substance: METOPROLOL
     Dosage: 50 MG, QD
  2. UPTRAVI [Suspect]
     Active Substance: SELEXIPAG
     Indication: PULMONARY ARTERIAL HYPERTENSION
     Dosage: 1000 MCG, BID
     Route: 048
  3. ECOTRIN [Concomitant]
     Active Substance: ASPIRIN
  4. IRON [Concomitant]
     Active Substance: IRON
     Dosage: 320 MG, QD
  5. VALSARTAN. [Concomitant]
     Active Substance: VALSARTAN
     Dosage: 160 MG, BID
  6. SIMVASTATIN. [Concomitant]
     Active Substance: SIMVASTATIN
  7. UPTRAVI [Suspect]
     Active Substance: SELEXIPAG
     Dosage: 200 MCG, BID
     Route: 048
     Dates: start: 20171213
  8. OMEPRAZOLE. [Concomitant]
     Active Substance: OMEPRAZOLE
  9. TYLENOL [Concomitant]
     Active Substance: ACETAMINOPHEN
  10. FUROSEMIDE. [Concomitant]
     Active Substance: FUROSEMIDE
  11. AMLODIPINE [Concomitant]
     Active Substance: AMLODIPINE BESYLATE
  12. ADCIRCA [Concomitant]
     Active Substance: TADALAFIL
     Dosage: 40 MG, QD
  13. METAMUCIL [Concomitant]
     Active Substance: PLANTAGO SEED
  14. POTASSIUM [Concomitant]
     Active Substance: POTASSIUM
  15. VITAMIN E [Concomitant]
     Active Substance: .ALPHA.-TOCOPHEROL
  16. TORSEMIDE. [Concomitant]
     Active Substance: TORSEMIDE
     Dosage: 20 UNK, UNK
  17. UPTRAVI [Suspect]
     Active Substance: SELEXIPAG
     Dosage: 600 MCG, QAM, 400 MCG QPM
     Route: 048
     Dates: start: 20160427
  18. ALBUTEROL. [Concomitant]
     Active Substance: ALBUTEROL
  19. CALTRATE [Concomitant]
     Active Substance: CALCIUM CARBONATE

REACTIONS (15)
  - Confusional state [Unknown]
  - Pulmonary arterial hypertension [Unknown]
  - Condition aggravated [Unknown]
  - Chills [Recovering/Resolving]
  - Transfusion [Recovering/Resolving]
  - Dyspnoea [Recovering/Resolving]
  - Dizziness [Unknown]
  - Haemoglobin decreased [Unknown]
  - Haematocrit decreased [Unknown]
  - Pleural effusion [Unknown]
  - Anaemia [Unknown]
  - Red blood cell count decreased [Unknown]
  - Chronic obstructive pulmonary disease [Unknown]
  - Cellulitis [Unknown]
  - Cardiac failure congestive [Recovering/Resolving]

NARRATIVE: CASE EVENT DATE: 20160506
